FAERS Safety Report 7415773-3 (Version None)
Quarter: 2011Q2

REPORT INFORMATION
  Report Type: 
  Country: None (occurrence: None)
  Receive Date: 20110414
  Receipt Date: 20110331
  Transmission Date: 20111010
  Serious: Yes (Other)
  Sender: FDA-Public Use
  Company Number: CA-JNJFOC-20110401343

PATIENT
  Sex: Male
  Weight: 99 kg

DRUGS (13)
  1. DOMPERIDONE [Concomitant]
     Route: 065
  2. OLANZAPINE [Concomitant]
     Route: 065
  3. REMICADE [Suspect]
     Indication: CROHN'S DISEASE
     Route: 042
  4. RABEPRAZOLE SODIUM [Concomitant]
     Route: 065
  5. CLONAZEPAM [Concomitant]
     Dosage: 15 MG AM + 2 MG BEDTIME
     Route: 065
  6. LOMOTIL [Concomitant]
     Route: 065
  7. CODEINE [Concomitant]
     Route: 065
  8. DETROL LA [Concomitant]
     Route: 065
  9. METOPROLOL TARTRATE [Concomitant]
     Dosage: AM
     Route: 065
  10. TYLENOL W/ CODEINE NO. 3 [Concomitant]
     Route: 065
  11. LOPERAMIDE [Concomitant]
     Route: 065
  12. EFFEXOR [Concomitant]
     Route: 065
  13. MIRTAZAPINE [Concomitant]
     Route: 065

REACTIONS (2)
  - DYSPNOEA [None]
  - CHEST PAIN [None]
